FAERS Safety Report 7723046-4 (Version None)
Quarter: 2011Q3

REPORT INFORMATION
  Report Type: 
  Country: None (occurrence: None)
  Receive Date: 20110901
  Receipt Date: 20100806
  Transmission Date: 20111222
  Serious: No
  Sender: FDA-Public Use
  Company Number: US-BAYER-201032730NA

PATIENT
  Age: 31 Year
  Sex: Female

DRUGS (2)
  1. MIRENA [Suspect]
     Indication: MENORRHAGIA
     Dosage: 20 ?G/D, CONT
     Route: 015
     Dates: start: 20091221, end: 20100802
  2. MIRENA [Suspect]
     Indication: UTERINE LEIOMYOMA

REACTIONS (4)
  - POST PROCEDURAL HAEMORRHAGE [None]
  - MENSTRUATION IRREGULAR [None]
  - PROCEDURAL PAIN [None]
  - VAGINAL HAEMORRHAGE [None]
